FAERS Safety Report 5323400-4 (Version None)
Quarter: 2007Q2

REPORT INFORMATION
  Report Type: 
  Country: None (occurrence: None)
  Receive Date: 20070514
  Receipt Date: 20070503
  Transmission Date: 20071010
  Serious: Yes (Hospitalization)
  Sender: FDA-Public Use
  Company Number: US-KINGPHARMUSA00001-K200700556

PATIENT

DRUGS (3)
  1. SONATA [Suspect]
     Dosage: 70 MG, UNK
     Route: 048
     Dates: start: 20070501, end: 20070501
  2. DIAZEPAM [Suspect]
     Dosage: 100 MG, UNK
     Route: 048
     Dates: start: 20070501, end: 20070501
  3. OPIPRAMOL [Suspect]
     Dosage: 2500 MG, UNK
     Route: 065
     Dates: start: 20070501, end: 20070501

REACTIONS (4)
  - INTENTIONAL OVERDOSE [None]
  - SOMNOLENCE [None]
  - SUICIDE ATTEMPT [None]
  - TACHYCARDIA [None]
